FAERS Safety Report 8540598-5 (Version None)
Quarter: 2012Q3

REPORT INFORMATION
  Report Type: 
  Country: None (occurrence: None)
  Receive Date: 20120713
  Receipt Date: 20120703
  Transmission Date: 20120928
  Serious: Yes (Other)
  Sender: FDA-Public Use
  Company Number: DSA_58346_2012

PATIENT
  Age: 79 Year
  Sex: Female

DRUGS (5)
  1. FLAGYL [Suspect]
     Indication: BONE ABSCESS
     Dosage: 500 MG TID ORAL
     Route: 048
     Dates: start: 20120424, end: 20120702
  2. DEPAKENE [Concomitant]
  3. FOSAMAX [Concomitant]
  4. AUGMENTIN '500' [Concomitant]
  5. AMOXICILLIN TRIHYDRATE [Concomitant]

REACTIONS (3)
  - POLYNEUROPATHY [None]
  - FALL [None]
  - COMPRESSION FRACTURE [None]
